FAERS Safety Report 8880940 (Version 9)
Quarter: 2014Q3

REPORT INFORMATION
  Report Type: Report from Study
  Country: FR (occurrence: FR)
  Receive Date: 20121101
  Receipt Date: 20140707
  Transmission Date: 20150326
  Serious: Yes (Hospitalization)
  Sender: FDA-Public Use
  Company Number: FR-PFIZER INC-2012263557

PATIENT
  Age: 68 Year
  Sex: Male
  Weight: 90 kg

DRUGS (14)
  1. TEMSIROLIMUS [Suspect]
     Active Substance: TEMSIROLIMUS
     Dosage: 3 MG, CYCLIC (CYCLE 1 DAY 8)
     Route: 042
     Dates: start: 20121010, end: 20121010
  2. DEXAMETHASONE. [Suspect]
     Active Substance: DEXAMETHASONE
     Dosage: 40 MG, UNK  (CYCLE 1 DAY 1 TO DAY 4)
     Route: 042
     Dates: start: 20121003, end: 20121006
  3. BACTRIM [Concomitant]
     Active Substance: SULFAMETHOXAZOLE\TRIMETHOPRIM
     Indication: PROPHYLAXIS
     Dosage: UNK
     Dates: start: 20121003
  4. RITUXIMAB [Concomitant]
     Active Substance: RITUXIMAB
     Dosage: 750 MG, UNK  (CYCLE 1 DAY 1)
     Route: 042
     Dates: start: 20121003, end: 20121003
  5. ARACYTINE [Suspect]
     Active Substance: CYTARABINE
     Dosage: 4000 MG, UNK (CYCLE 1 DAY 2)
     Route: 042
     Dates: start: 20121004, end: 20121004
  6. ZELITREX [Concomitant]
     Active Substance: VALACYCLOVIR HYDROCHLORIDE
     Indication: PROPHYLAXIS
     Dosage: UNK
     Dates: start: 20121003
  7. ZARZIO [Concomitant]
     Active Substance: FILGRASTIM
     Dosage: 480 MG
     Dates: start: 20121015
  8. TEMSIROLIMUS [Suspect]
     Active Substance: TEMSIROLIMUS
     Dosage: 3 MG, CYCLIC (CYCLE 1 DAY 2)
     Route: 042
     Dates: start: 20121004, end: 20121004
  9. ARACYTINE [Suspect]
     Active Substance: CYTARABINE
     Dosage: 4000 MG, UNK  (CYCLE 1 DAY 3)
     Route: 042
     Dates: start: 20121005, end: 20121005
  10. LEDERFOLIN [Concomitant]
     Active Substance: LEUCOVORIN CALCIUM
     Indication: PROPHYLAXIS
     Dosage: UNK
     Dates: start: 20121003
  11. ZARZIO [Concomitant]
     Active Substance: FILGRASTIM
     Indication: COLONY STIMULATING FACTOR PROPHYLAXIS
     Dosage: 48, UNK
     Dates: start: 20121008, end: 20121014
  12. BECLOMETASONE [Concomitant]
     Active Substance: BECLOMETHASONE DIPROPIONATE
     Indication: ASTHMA
     Dosage: UNK
     Dates: start: 1980
  13. NICARDIPINE [Concomitant]
     Active Substance: NICARDIPINE
     Indication: HYPERTENSION
     Dosage: UNK
  14. SALMETEROL [Concomitant]
     Active Substance: SALMETEROL
     Indication: ASTHMA
     Dosage: UNK
     Dates: start: 1980

REACTIONS (2)
  - Febrile neutropenia [Recovered/Resolved]
  - Thrombocytopenia [Recovered/Resolved]

NARRATIVE: CASE EVENT DATE: 20121015
